FAERS Safety Report 7266700-3 (Version None)
Quarter: 2011Q1

REPORT INFORMATION
  Report Type: 
  Country: None (occurrence: None)
  Receive Date: 20110201
  Receipt Date: 20090217
  Transmission Date: 20110831
  Serious: No
  Sender: FDA-Public Use
  Company Number: 2009BI005260

PATIENT
  Age: 37 Year
  Sex: Female

DRUGS (1)
  1. TYSABRI [Suspect]
     Indication: MULTIPLE SCLEROSIS
     Route: 042
     Dates: start: 20081023

REACTIONS (16)
  - ERYTHEMA [None]
  - PRURITUS GENERALISED [None]
  - LYMPHOCYTE COUNT INCREASED [None]
  - HYPOTENSION [None]
  - PANIC ATTACK [None]
  - TREMOR [None]
  - DYSPNOEA [None]
  - DIZZINESS [None]
  - ARTHRALGIA [None]
  - HYPERHIDROSIS [None]
  - MUSCLE SPASMS [None]
  - FEELING ABNORMAL [None]
  - PELVIC PAIN [None]
  - MEMORY IMPAIRMENT [None]
  - WHITE BLOOD CELL COUNT INCREASED [None]
  - FLUSHING [None]
